FAERS Safety Report 10583109 (Version 2)
Quarter: 2015Q2

REPORT INFORMATION
  Report Type: Report from Study
  Country: US (occurrence: US)
  Receive Date: 20141114
  Receipt Date: 20150417
  Transmission Date: 20150821
  Serious: Yes (Death, Life-Threatening, Hospitalization, Other)
  Sender: FDA-Public Use
  Company Number: US-ROCHE-1489376

PATIENT
  Sex: Female

DRUGS (6)
  1. VALGANCICLOVIR [Suspect]
     Active Substance: VALGANCICLOVIR
     Indication: LUNG TRANSPLANT
     Route: 048
  2. CELLCEPT [Suspect]
     Active Substance: MYCOPHENOLATE MOFETIL\MYCOPHENOLATE MOFETIL HYDROCHLORIDE
     Indication: LUNG TRANSPLANT
     Route: 048
     Dates: start: 20130716
  3. ESBRIET [Suspect]
     Active Substance: PIRFENIDONE
     Indication: LUNG DISORDER
     Route: 065
  4. LASIX [Concomitant]
     Active Substance: FUROSEMIDE
     Indication: BLOOD PRESSURE
  5. MUCINEX [Concomitant]
     Active Substance: GUAIFENESIN
  6. PROGRAF [Concomitant]
     Active Substance: TACROLIMUS\TACROLIMUS ANHYDROUS

REACTIONS (10)
  - Oxygen saturation decreased [Unknown]
  - Influenza [Unknown]
  - Pancreatitis [Unknown]
  - Corneal perforation [Unknown]
  - Nausea [Unknown]
  - Pneumonia [Unknown]
  - Asthenia [Unknown]
  - Transplant rejection [Fatal]
  - Infection in an immunocompromised host [Unknown]
  - Graft infection [Unknown]
